FAERS Safety Report 24225084 (Version 1)
Quarter: 2024Q3

REPORT INFORMATION
  Report Type: Report from Study
  Country: US (occurrence: None)
  Receive Date: 20240820
  Receipt Date: 20240820
  Transmission Date: 20241016
  Serious: Yes (Hospitalization, Other)
  Sender: ASTRAZENECA
  Company Number: 2022A363434

PATIENT
  Sex: Male

DRUGS (1)
  1. TAGRISSO [Suspect]
     Active Substance: OSIMERTINIB
     Indication: Lung carcinoma cell type unspecified stage 0
     Route: 048

REACTIONS (11)
  - Metastases to central nervous system [Unknown]
  - Pericarditis [Unknown]
  - Pneumonia [Unknown]
  - Sinusitis [Unknown]
  - Prostatic specific antigen increased [Unknown]
  - Gait disturbance [Unknown]
  - Fatigue [Unknown]
  - Dyspnoea [Unknown]
  - Haemoglobin decreased [Unknown]
  - White blood cell count decreased [Unknown]
  - Blood thyroid stimulating hormone decreased [Unknown]
